FAERS Safety Report 22202175 (Version 1)
Quarter: 2023Q2

REPORT INFORMATION
  Report Type: Spontaneous
  Country: US (occurrence: None)
  Receive Date: 20230411
  Receipt Date: 20230411
  Transmission Date: 20230722
  Serious: Yes (Hospitalization)
  Sender: FDA-Public Use
  Company Number: None

PATIENT
  Age: 53 Year
  Sex: Female

DRUGS (1)
  1. DEFERASIROX [Suspect]
     Active Substance: DEFERASIROX
     Dosage: FREQUENCY : DAILY;?
     Route: 048

REACTIONS (5)
  - Hypoaesthesia [None]
  - Paraesthesia [None]
  - Blood calcium decreased [None]
  - Infusion related reaction [None]
  - Sickle cell disease [None]

NARRATIVE: CASE EVENT DATE: 20230411
